FAERS Safety Report 18440596 (Version 1)
Quarter: 2020Q4

REPORT INFORMATION
  Report Type: Spontaneous
  Country: US (occurrence: US)
  Receive Date: 20201029
  Receipt Date: 20201029
  Transmission Date: 20210114
  Serious: Yes (Hospitalization)
  Sender: FDA-Public Use
  Company Number: None

PATIENT
  Age: 68 Year
  Sex: Male
  Weight: 115.2 kg

DRUGS (23)
  1. JARDIANCE [Concomitant]
     Active Substance: EMPAGLIFLOZIN
  2. CLOPODOGREL [Concomitant]
  3. METOPROLOL. [Concomitant]
     Active Substance: METOPROLOL
  4. TRULICITY [Concomitant]
     Active Substance: DULAGLUTIDE
  5. ALLOPURINOL. [Concomitant]
     Active Substance: ALLOPURINOL
  6. CRESTOR [Concomitant]
     Active Substance: ROSUVASTATIN CALCIUM
  7. DEXAMETHASONE. [Concomitant]
     Active Substance: DEXAMETHASONE
  8. LOTRIMIN CREAM [Concomitant]
  9. FLUCONAOLE [Concomitant]
  10. LANTUS [Concomitant]
     Active Substance: INSULIN GLARGINE
  11. LISINOPRIL. [Concomitant]
     Active Substance: LISINOPRIL
  12. ASPIRIN. [Concomitant]
     Active Substance: ASPIRIN
  13. CARVEDILOL. [Concomitant]
     Active Substance: CARVEDILOL
  14. ELIQUIS [Concomitant]
     Active Substance: APIXABAN
  15. FLOMAX [Concomitant]
     Active Substance: TAMSULOSIN HYDROCHLORIDE
  16. GABAPENTIN. [Concomitant]
     Active Substance: GABAPENTIN
  17. TRIAMTERENE HCTZ [Concomitant]
     Active Substance: HYDROCHLOROTHIAZIDE\TRIAMTERENE
  18. PEPCID [Suspect]
     Active Substance: FAMOTIDINE
  19. TOPICAL HYDROCORTISONE CREAM [Suspect]
     Active Substance: HYDROCORTISONE
  20. TYLENOL [Concomitant]
     Active Substance: ACETAMINOPHEN
  21. CISPLATIN. [Suspect]
     Active Substance: CISPLATIN
     Dates: end: 20200928
  22. ANORO INHALER [Concomitant]
  23. DILTIAZEM. [Concomitant]
     Active Substance: DILTIAZEM

REACTIONS (5)
  - Device related infection [None]
  - Erythema [None]
  - Sepsis [None]
  - Pruritus [None]
  - Skin candida [None]

NARRATIVE: CASE EVENT DATE: 20201027
